FAERS Safety Report 19768516 (Version 1)
Quarter: 2021Q3

REPORT INFORMATION
  Report Type: Other
  Country: CL (occurrence: CL)
  Receive Date: 20210831
  Receipt Date: 20210831
  Transmission Date: 20211014
  Serious: Yes (Hospitalization, Disabling, Other)
  Sender: FDA-Public Use
  Company Number: CL-ROCHE-2898668

PATIENT
  Age: 69 Year
  Sex: Female
  Weight: 95 kg

DRUGS (1)
  1. RITUXIMAB. [Suspect]
     Active Substance: RITUXIMAB
     Indication: NEUROMYELITIS OPTICA SPECTRUM DISORDER
     Route: 065
     Dates: start: 2014

REACTIONS (11)
  - Pneumonia [Unknown]
  - Drug ineffective [Unknown]
  - Sepsis [Unknown]
  - Gait disturbance [Unknown]
  - Oxygen therapy [Unknown]
  - Vitamin B complex deficiency [Unknown]
  - Off label use [Unknown]
  - Vitamin D decreased [Unknown]
  - Urinary incontinence [Unknown]
  - Oedema [Unknown]
  - Fatigue [Unknown]

NARRATIVE: CASE EVENT DATE: 2014
